FAERS Safety Report 4722310-0 (Version None)
Quarter: 2005Q3

REPORT INFORMATION
  Report Type: 
  Country: None (occurrence: None)
  Receive Date: 20050720
  Receipt Date: 20050707
  Transmission Date: 20060218
  Serious: Yes (Other)
  Sender: FDA-Public Use
  Company Number: 2005099120

PATIENT
  Sex: Female

DRUGS (9)
  1. DILANTIN KAPSEAL [Suspect]
     Indication: CONVULSION
     Dosage: 400 MG (200 MG, 2 IN 1 D), ORAL
     Route: 048
  2. FERROUS SULFATE TAB [Suspect]
     Indication: IRON DEFICIENCY ANAEMIA
  3. SYNTHROID [Concomitant]
  4. DOCUSATE SODIUM (DOCUSATE SODIUM) [Concomitant]
  5. MULTIVITAMNS (MULTIVITAMINS) [Concomitant]
  6. ACTONEL [Concomitant]
  7. OYSTER SHELL CALCIUM (CALCIUM CARBONATE) [Concomitant]
  8. PHENOBARBITAL TAB [Concomitant]
  9. SENNA (SENNA) [Concomitant]

REACTIONS (5)
  - ANTICONVULSANT DRUG LEVEL DECREASED [None]
  - CONDITION AGGRAVATED [None]
  - CONVULSION [None]
  - DRUG INTERACTION [None]
  - IRON DEFICIENCY ANAEMIA [None]
